FAERS Safety Report 7074211-3 (Version None)
Quarter: 2010Q4

REPORT INFORMATION
  Report Type: 
  Country: None (occurrence: None)
  Receive Date: 20101029
  Receipt Date: 20101027
  Transmission Date: 20110411
  Serious: Yes (Hospitalization)
  Sender: FDA-Public Use
  Company Number: PT-AMGEN-UK332301

PATIENT

DRUGS (3)
  1. DARBEPOETIN ALFA [Suspect]
     Indication: RENAL FAILURE CHRONIC
     Dosage: 20 A?G, QWK
     Route: 042
     Dates: start: 20081201
  2. SEVELAMER [Concomitant]
     Dosage: 800 MG, QD
  3. FOLICIL [Concomitant]
     Dosage: 5 MG, UNK

REACTIONS (1)
  - BACTERIAL PYELONEPHRITIS [None]
